FAERS Safety Report 19306870 (Version 1)
Quarter: 2021Q2

REPORT INFORMATION
  Report Type: Spontaneous
  Country: US (occurrence: US)
  Receive Date: 20210526
  Receipt Date: 20210526
  Transmission Date: 20210717
  Serious: No
  Sender: FDA-Public Use
  Company Number: US-NOVITIUMPHARMA-2021USNVP00045

PATIENT
  Age: 10 Month
  Sex: Female

DRUGS (2)
  1. OXYBUTYNIN CHLORIDE TABLETS, USP 5 MG [Suspect]
     Active Substance: OXYBUTYNIN CHLORIDE
     Indication: PRODUCT USED FOR UNKNOWN INDICATION
     Route: 048
  2. OXYBUTYNIN CHLORIDE TABLETS, USP 5 MG [Suspect]
     Active Substance: OXYBUTYNIN CHLORIDE

REACTIONS (3)
  - Rash [Unknown]
  - Incorrect route of product administration [Unknown]
  - Dry mouth [Unknown]
